FAERS Safety Report 13195797 (Version 1)
Quarter: 2017Q1

REPORT INFORMATION
  Report Type: Spontaneous
  Country: US (occurrence: US)
  Receive Date: 20170207
  Receipt Date: 20170207
  Transmission Date: 20170428
  Serious: Yes (Disabling)
  Sender: FDA-Public Use
  Company Number: None

PATIENT
  Age: 63 Year
  Sex: Female
  Weight: 60.75 kg

DRUGS (6)
  1. COQ10 [Concomitant]
     Active Substance: UBIDECARENONE
  2. ESTRIOL [Concomitant]
     Active Substance: ESTRIOL
  3. DHEA [Concomitant]
     Active Substance: PRASTERONE
  4. CIPRO [Suspect]
     Active Substance: CIPROFLOXACIN HYDROCHLORIDE
     Indication: URINARY TRACT INFECTION
     Route: 048
     Dates: start: 20150925, end: 20150928
  5. TESTOSTERONE CREAMS [Concomitant]
  6. VITAMIN D [Concomitant]
     Active Substance: CHOLECALCIFEROL

REACTIONS (3)
  - Tendon rupture [None]
  - Pain [None]
  - Rotator cuff syndrome [None]

NARRATIVE: CASE EVENT DATE: 20150925
